FAERS Safety Report 19610998 (Version 1)
Quarter: 2021Q3

REPORT INFORMATION
  Report Type: Spontaneous
  Country: ES (occurrence: ES)
  Receive Date: 20210726
  Receipt Date: 20210726
  Transmission Date: 20211014
  Serious: Yes (Other)
  Sender: FDA-Public Use
  Company Number: ES-ASTRAZENECA-2021A623714

PATIENT
  Age: 53 Year
  Sex: Male

DRUGS (1)
  1. QUETIAPINE. [Suspect]
     Active Substance: QUETIAPINE
     Indication: ANTIDEPRESSANT THERAPY
     Route: 048
     Dates: start: 2018

REACTIONS (8)
  - Dysarthria [Unknown]
  - Dysmetria [Unknown]
  - Bradyphrenia [Unknown]
  - Hemiparesis [Unknown]
  - Disorientation [Unknown]
  - Fall [Unknown]
  - Gait disturbance [Unknown]
  - Slow speech [Unknown]

NARRATIVE: CASE EVENT DATE: 2018
